FAERS Safety Report 9277174 (Version 1)
Quarter: 2013Q2

REPORT INFORMATION
  Report Type: Spontaneous
  Country: US (occurrence: US)
  Receive Date: 20130508
  Receipt Date: 20130508
  Transmission Date: 20140414
  Serious: Yes (Hospitalization, Other)
  Sender: FDA-Public Use
  Company Number: US-AMGEN-USASP2013030255

PATIENT
  Age: 75 Year
  Sex: Female

DRUGS (8)
  1. PROLIA [Suspect]
     Indication: OSTEOPOROSIS POSTMENOPAUSAL
     Dosage: UNK
     Dates: start: 20120920
  2. MULTIVITAMIN                       /00097801/ [Concomitant]
  3. VITAMIN C                          /00008001/ [Concomitant]
  4. VITAMIN D /00107901/ [Concomitant]
  5. CLOPIDOGREL [Concomitant]
  6. LOSARTAN [Concomitant]
  7. CARVEDILOL [Concomitant]
  8. ATORVASTATIN [Concomitant]

REACTIONS (9)
  - Myocardial infarction [Unknown]
  - Stress cardiomyopathy [Unknown]
  - Pain [Recovered/Resolved]
  - Mobility decreased [Unknown]
  - Cystitis [Unknown]
  - Myalgia [Unknown]
  - Bone pain [Unknown]
  - Musculoskeletal pain [Unknown]
  - Back pain [Recovered/Resolved]
